FAERS Safety Report 8182725-8 (Version None)
Quarter: 2012Q1

REPORT INFORMATION
  Report Type: 
  Country: None (occurrence: None)
  Receive Date: 20120305
  Receipt Date: 20120227
  Transmission Date: 20120608
  Serious: No
  Sender: FDA-Public Use
  Company Number: US-PFIZER INC-2012052531

PATIENT
  Sex: Female

DRUGS (2)
  1. PANTOPRAZOLE [Suspect]
     Dosage: UNK
     Dates: start: 20120101
  2. PROTONIX [Suspect]

REACTIONS (2)
  - HEART RATE IRREGULAR [None]
  - DRUG INEFFECTIVE [None]
